FAERS Safety Report 15754093 (Version 1)
Quarter: 2018Q4

REPORT INFORMATION
  Report Type: Other
  Country: GB (occurrence: GB)
  Receive Date: 20181223
  Receipt Date: 20181223
  Transmission Date: 20190205
  Serious: Yes (Hospitalization, Other)
  Sender: FDA-Public Use
  Company Number: GB-DEXPHARM-20180945

PATIENT
  Age: 40 Year
  Sex: Male

DRUGS (2)
  1. CHLORAPREP [Suspect]
     Active Substance: CHLORHEXIDINE GLUCONATE\ISOPROPYL ALCOHOL
     Dates: start: 201708
  2. SALINE [Concomitant]
     Active Substance: SODIUM CHLORIDE
     Dates: start: 2017

REACTIONS (2)
  - Hypersensitivity [Recovered/Resolved]
  - Bacterial infection [Recovered/Resolved]

NARRATIVE: CASE EVENT DATE: 201708
